FAERS Safety Report 4884051-9 (Version None)
Quarter: 2005Q4

REPORT INFORMATION
  Report Type: 
  Country: None (occurrence: None)
  Receive Date: 20051201
  Receipt Date: 20050902
  Transmission Date: 20060501
  Serious: No
  Sender: FDA-Public Use
  Company Number: 2005PV001875

PATIENT
  Age: 76 Year
  Sex: Female
  Weight: 79.3795 kg

DRUGS (9)
  1. BYETTA [Suspect]
     Indication: DIABETES MELLITUS NON-INSULIN-DEPENDENT
     Dosage: 5 MCG; BID; SC
     Route: 058
     Dates: start: 20050830, end: 20050901
  2. GLIPIZIDE [Concomitant]
  3. AVANDIA [Concomitant]
  4. AVANDIA [Concomitant]
  5. TOPROL-XL [Concomitant]
  6. HYDRALAZINE [Concomitant]
  7. BENICAR [Concomitant]
  8. DYNACIRC [Concomitant]
  9. FUROSEMIDE [Concomitant]

REACTIONS (3)
  - ASTHENIA [None]
  - HYPOGLYCAEMIA [None]
  - SOMNOLENCE [None]
